FAERS Safety Report 21698320 (Version 1)
Quarter: 2022Q4

REPORT INFORMATION
  Report Type: Report from Study
  Country: US (occurrence: US)
  Receive Date: 20221208
  Receipt Date: 20221208
  Transmission Date: 20230113
  Serious: No
  Sender: FDA-Public Use
  Company Number: US-ABBVIE-4224936

PATIENT
  Sex: Female

DRUGS (1)
  1. IMBRUVICA [Suspect]
     Active Substance: IBRUTINIB
     Indication: Chronic lymphocytic leukaemia
     Route: 048

REACTIONS (6)
  - Decreased activity [Not Recovered/Not Resolved]
  - Adverse drug reaction [Unknown]
  - Myalgia [Unknown]
  - Pain [Not Recovered/Not Resolved]
  - Bone pain [Unknown]
  - Fatigue [Unknown]
